FAERS Safety Report 15448158 (Version 1)
Quarter: 2018Q3

REPORT INFORMATION
  Report Type: Report from Study
  Country: None (occurrence: TW)
  Receive Date: 20180928
  Receipt Date: 20180928
  Transmission Date: 20181010
  Serious: Yes (Other)
  Sender: FDA-Public Use
  Company Number: TW-ABBVIE-18K-153-2501713-00

PATIENT
  Age: 59 Year
  Sex: Male
  Weight: 70 kg

DRUGS (1)
  1. HUMIRA [Suspect]
     Active Substance: ADALIMUMAB
     Indication: CROHN^S DISEASE
     Route: 058
     Dates: start: 20171120, end: 20180910

REACTIONS (2)
  - Computerised tomogram abnormal [Unknown]
  - Tuberculosis [Recovering/Resolving]

NARRATIVE: CASE EVENT DATE: 20180906
